FAERS Safety Report 5310599-9 (Version None)
Quarter: 2007Q1

REPORT INFORMATION
  Report Type: 
  Country: None (occurrence: None)
  Receive Date: 20070201
  Receipt Date: 20061120
  Transmission Date: 20070707
  Serious: No
  Sender: FDA-Public Use
  Company Number: 258682

PATIENT
  Age: 70 Year
  Sex: Female
  Weight: 77.1 kg

DRUGS (7)
  1. LEVEMIR [Suspect]
     Indication: INSULIN-REQUIRING TYPE II DIABETES MELLITUS
     Dosage: 38 IU, QD, SUBCUTANEOUS
     Route: 058
     Dates: start: 20060801
  2. NOVOLOG [Concomitant]
  3. ZESTRIL [Concomitant]
  4. LIPITOR [Concomitant]
  5. AMARYL (GLIMEPIRIDE) CAPSULE [Concomitant]
  6. METFORMIN HCL [Concomitant]
  7. AVANDIA [Concomitant]

REACTIONS (1)
  - RASH [None]
